FAERS Safety Report 19958689 (Version 1)
Quarter: 2021Q4

REPORT INFORMATION
  Report Type: Spontaneous
  Country: KR (occurrence: KR)
  Receive Date: 20211015
  Receipt Date: 20211015
  Transmission Date: 20220303
  Serious: Yes (Other)
  Sender: FDA-Public Use
  Company Number: KR-BAYER-2021A226405

PATIENT
  Age: 30 Year
  Sex: Female

DRUGS (1)
  1. SORAFENIB [Suspect]
     Active Substance: SORAFENIB
     Indication: Hepatocellular carcinoma

REACTIONS (7)
  - Metastases to lung [None]
  - Tumour marker increased [None]
  - Alpha 1 foetoprotein increased [None]
  - Protein induced by vitamin K absence or antagonist II increased [None]
  - Pulmonary resection [None]
  - Cancer surgery [None]
  - Metastases to lung [None]
